FAERS Safety Report 7073921-1 (Version None)
Quarter: 2010Q4

REPORT INFORMATION
  Report Type: 
  Country: None (occurrence: None)
  Receive Date: 20101029
  Receipt Date: 20101021
  Transmission Date: 20110411
  Serious: Yes (Hospitalization, Other)
  Sender: FDA-Public Use
  Company Number: US-SANOFI-AVENTIS-2010SA065004

PATIENT
  Age: 63 Year
  Sex: Female

DRUGS (22)
  1. LASIX [Suspect]
     Indication: OEDEMA PERIPHERAL
     Dosage: INTAKE AS NEEDED
     Route: 048
     Dates: start: 20060123
  2. BLINDED THERAPY [Concomitant]
     Indication: BREAST CANCER
     Route: 048
     Dates: start: 20010720
  3. NEXIUM [Concomitant]
  4. DARVOCET-N 100 [Concomitant]
  5. LEVOTHYROXINE [Concomitant]
  6. XOPENEX [Concomitant]
  7. AVANDIA [Concomitant]
  8. METFORMIN [Concomitant]
  9. REGLAN [Concomitant]
  10. SOMA [Concomitant]
  11. TRAZODONE [Concomitant]
  12. XANAX [Concomitant]
  13. ATORVASTATIN CALCIUM [Concomitant]
  14. POLYSACCHARIDE-IRON COMPLEX [Concomitant]
  15. FERROUS FUMARATE [Concomitant]
  16. PROMETHAZINE [Concomitant]
  17. TERBUTALINE SULFATE [Concomitant]
  18. PROZAC [Concomitant]
  19. PREDNISONE [Concomitant]
  20. DARVON [Concomitant]
  21. ZOFRAN [Concomitant]
  22. LOMOTIL [Concomitant]

REACTIONS (10)
  - BLOOD CALCIUM DECREASED [None]
  - BLOOD CHLORIDE DECREASED [None]
  - BLOOD CREATININE INCREASED [None]
  - BLOOD GLUCOSE DECREASED [None]
  - BLOOD SODIUM DECREASED [None]
  - BLOOD UREA INCREASED [None]
  - CARBON DIOXIDE DECREASED [None]
  - CONTUSION [None]
  - ELECTROLYTE IMBALANCE [None]
  - FALL [None]
